FAERS Safety Report 7227082-6 (Version None)
Quarter: 2011Q1

REPORT INFORMATION
  Report Type: 
  Country: None (occurrence: None)
  Receive Date: 20110114
  Receipt Date: 20110111
  Transmission Date: 20110831
  Serious: Yes (Life-Threatening)
  Sender: FDA-Public Use
  Company Number: BR-SHIRE-SPV1-2010-01967

PATIENT
  Age: 11 Year
  Sex: Male

DRUGS (4)
  1. ELAPRASE [Suspect]
     Indication: MUCOPOLYSACCHARIDOSIS II
     Dosage: 2 UNK, 1X/WEEK
     Route: 041
     Dates: start: 20080201
  2. BENADRYL [Concomitant]
     Indication: INFUSION RELATED REACTION
     Dosage: UNK, 1X/WEEK
  3. FLEBOCORTID [Concomitant]
     Dosage: 500 MG, ONE DOSE
     Dates: start: 20101010, end: 20101010
  4. FLEBOCORTID [Concomitant]
     Indication: INFUSION RELATED REACTION
     Dosage: 200 MG, 1X/WEEK

REACTIONS (12)
  - INFUSION RELATED REACTION [None]
  - LARYNGEAL OEDEMA [None]
  - TACHYPNOEA [None]
  - TONSILLAR INFLAMMATION [None]
  - CYANOSIS [None]
  - RASH [None]
  - STRIDOR [None]
  - RENAL IMPAIRMENT [None]
  - COUGH [None]
  - URTICARIA [None]
  - ERYTHEMA [None]
  - DYSPNOEA [None]
